FAERS Safety Report 6104452-0 (Version None)
Quarter: 2009Q1

REPORT INFORMATION
  Report Type: 
  Country: None (occurrence: None)
  Receive Date: 20090227
  Receipt Date: 20081016
  Transmission Date: 20090719
  Serious: Yes (Hospitalization)
  Sender: FDA-Public Use
  Company Number: RB-5190-2008

PATIENT
  Age: 14 Year
  Sex: Female

DRUGS (1)
  1. SUBOXONE [Suspect]
     Indication: INTENTIONAL OVERDOSE
     Dosage: PATIENT TOOK 10-12 SUBOXONE TABLETS.
     Dates: start: 20081012, end: 20081012

REACTIONS (3)
  - ANGER [None]
  - INTENTIONAL OVERDOSE [None]
  - LETHARGY [None]
